FAERS Safety Report 5451174-5 (Version None)
Quarter: 2007Q3

REPORT INFORMATION
  Report Type: 
  Country: None (occurrence: None)
  Receive Date: 20070802
  Receipt Date: 20070328
  Transmission Date: 20080115
  Serious: Yes (Other)
  Sender: FDA-Public Use
  Company Number: 2007025494

PATIENT
  Sex: Male
  Weight: 74.8 kg

DRUGS (2)
  1. IRINOTECAN HCL [Suspect]
     Dates: start: 20070301
  2. EMEND [Concomitant]

REACTIONS (2)
  - ADVERSE EVENT [None]
  - PAIN [None]
